FAERS Safety Report 8437455-1 (Version None)
Quarter: 2012Q2

REPORT INFORMATION
  Report Type: 
  Country: None (occurrence: None)
  Receive Date: 20120614
  Receipt Date: 20120327
  Transmission Date: 20120825
  Serious: No
  Sender: FDA-Public Use
  Company Number: US-AMGEN-USASP2012019842

PATIENT
  Sex: Male

DRUGS (2)
  1. CASODEX [Concomitant]
     Dosage: UNK UNK, QD
  2. XGEVA [Suspect]
     Indication: PROSTATE CANCER METASTATIC
     Dosage: 120 MG, Q4WK
     Dates: start: 20120228

REACTIONS (1)
  - ABSCESS ORAL [None]
